APPROVED DRUG PRODUCT: AMRINONE LACTATE
Active Ingredient: INAMRINONE LACTATE
Strength: EQ 5MG BASE/ML
Dosage Form/Route: INJECTABLE;INJECTION
Application: A074616 | Product #001
Applicant: HOSPIRA INC
Approved: Aug 3, 1998 | RLD: No | RS: No | Type: DISCN